FAERS Safety Report 24051332 (Version 1)
Quarter: 2024Q3

REPORT INFORMATION
  Report Type: Spontaneous
  Country: US (occurrence: US)
  Receive Date: 20240704
  Receipt Date: 20240704
  Transmission Date: 20241017
  Serious: Yes (Other)
  Sender: JUBILANT
  Company Number: US-JUBILANT CADISTA PHARMACEUTICALS-2024US000881

PATIENT
  Age: 38 Year
  Sex: Female

DRUGS (5)
  1. AMANTADINE [Suspect]
     Active Substance: AMANTADINE
     Indication: Chorea
     Dosage: UNK,UNK
     Route: 065
  2. DOXEPIN [Concomitant]
     Active Substance: DOXEPIN
     Indication: Sleep disorder
     Dosage: UNK,UNK
     Route: 065
  3. RISPERIDONE [Concomitant]
     Active Substance: RISPERIDONE
     Indication: Chorea
     Dosage: 1.5 MG, 2 TIMES PER DAY, INCREASED TO 1.5 MG BID
     Route: 065
  4. RISPERIDONE [Concomitant]
     Active Substance: RISPERIDONE
     Dosage: 2 MG, 2 TIMES PER DAY, SLOWLY INCREASED TO 2 MG BID
     Route: 065
  5. RISPERIDONE [Concomitant]
     Active Substance: RISPERIDONE
     Dosage: 6 MG, TOTAL, INCREASED TO 6 MG TOTAL PER DAY
     Route: 065

REACTIONS (2)
  - Delusion of parasitosis [Recovered/Resolved]
  - Anxiety [Recovered/Resolved]
